FAERS Safety Report 16811911 (Version 1)
Quarter: 2019Q3

REPORT INFORMATION
  Report Type: Spontaneous
  Country: HT (occurrence: HT)
  Receive Date: 20190916
  Receipt Date: 20190916
  Transmission Date: 20191005
  Serious: Yes (Death, Hospitalization)
  Sender: FDA-Public Use
  Company Number: HT-VALIDUS PHARMACEUTICALS LLC-HT-2019VAL000519

PATIENT

DRUGS (14)
  1. LEVOFLOXACIN. [Suspect]
     Active Substance: LEVOFLOXACIN
     Dosage: 1000 UNK, UNK
     Route: 048
     Dates: start: 20180730, end: 20190329
  2. CARVEDILOL. [Suspect]
     Active Substance: CARVEDILOL
     Indication: PRODUCT USED FOR UNKNOWN INDICATION
     Dosage: 6.25 MG, QD
     Route: 048
     Dates: start: 20180628, end: 2018
  3. CYCLOSERINE. [Suspect]
     Active Substance: CYCLOSERINE
     Dosage: 500 UNK, UNK
     Route: 048
     Dates: start: 20180730, end: 20190329
  4. CARVEDILOL. [Suspect]
     Active Substance: CARVEDILOL
     Dosage: UNK
     Route: 065
     Dates: start: 20180730
  5. PYRAZINAMIDE. [Suspect]
     Active Substance: PYRAZINAMIDE
     Dosage: UNK
     Route: 065
     Dates: start: 20180730, end: 20190329
  6. SIRTURO [Suspect]
     Active Substance: BEDAQUILINE FUMARATE
     Indication: TUBERCULOSIS
     Dosage: UNK
     Route: 048
     Dates: start: 20171030, end: 20180428
  7. INSULIN [Concomitant]
     Active Substance: INSULIN NOS
     Indication: PRODUCT USED FOR UNKNOWN INDICATION
     Dosage: UNK
     Dates: start: 20171003
  8. PYRAZINAMIDE. [Suspect]
     Active Substance: PYRAZINAMIDE
     Indication: TUBERCULOSIS
     Dosage: 1750 MG, UNK
     Route: 048
     Dates: start: 20171003, end: 20180713
  9. FUROSEMIDE. [Suspect]
     Active Substance: FUROSEMIDE
     Indication: PRODUCT USED FOR UNKNOWN INDICATION
     Dosage: 80 MG, QD
     Route: 042
     Dates: start: 20180628
  10. CYCLOSERINE. [Suspect]
     Active Substance: CYCLOSERINE
     Indication: TUBERCULOSIS
     Dosage: 500 MG, UNK
     Route: 048
     Dates: start: 20171003, end: 20180713
  11. LEVOFLOXACIN. [Suspect]
     Active Substance: LEVOFLOXACIN
     Indication: TUBERCULOSIS
     Dosage: 1000 MG, UNK
     Route: 048
     Dates: start: 20171003, end: 20180713
  12. ETHIONAMIDE [Suspect]
     Active Substance: ETHIONAMIDE
     Indication: TUBERCULOSIS
     Dosage: 750 MG, UNK
     Route: 048
     Dates: start: 20171003, end: 20180713
  13. ETHIONAMIDE [Suspect]
     Active Substance: ETHIONAMIDE
     Dosage: UNK
     Route: 065
     Dates: start: 20180730, end: 20190329
  14. BUTYLSCOPOLAMINE [Suspect]
     Active Substance: BUTYLSCOPOLAMINE
     Indication: PRODUCT USED FOR UNKNOWN INDICATION
     Dosage: 10 MG, PRN
     Route: 030
     Dates: start: 201806

REACTIONS (6)
  - Condition aggravated [Fatal]
  - Cardiac disorder [Fatal]
  - Pleural effusion [Unknown]
  - Myocardial ischaemia [Unknown]
  - Hepatomegaly [Unknown]
  - Hepatic enzyme increased [Recovering/Resolving]

NARRATIVE: CASE EVENT DATE: 20180628
